FAERS Safety Report 6967857-1 (Version None)
Quarter: 2010Q3

REPORT INFORMATION
  Report Type: 
  Country: None (occurrence: None)
  Receive Date: 20100907
  Receipt Date: 20100318
  Transmission Date: 20110219
  Serious: No
  Sender: FDA-Public Use
  Company Number: A0850879A

PATIENT
  Age: 84 Year
  Sex: Female

DRUGS (8)
  1. REQUIP [Suspect]
     Indication: PARKINSON'S DISEASE
     Dosage: 2MG FOUR TIMES PER DAY
     Route: 048
     Dates: end: 20100304
  2. CARBIDOPA [Concomitant]
  3. SYNTHROID [Concomitant]
  4. LASIX [Concomitant]
  5. IMDUR [Concomitant]
  6. BLOOD PRESSURE MEDICATION [Concomitant]
  7. CLONAZEPAM [Concomitant]
  8. POTASSIUM [Concomitant]

REACTIONS (4)
  - DRUG INEFFECTIVE [None]
  - INSOMNIA [None]
  - SOMNOLENCE [None]
  - TREMOR [None]
